FAERS Safety Report 24325194 (Version 2)
Quarter: 2024Q4

REPORT INFORMATION
  Report Type: Spontaneous
  Country: AU (occurrence: AU)
  Receive Date: 20240916
  Receipt Date: 20241018
  Transmission Date: 20250115
  Serious: Yes (Hospitalization)
  Sender: BIOMARIN
  Company Number: AU-BIOMARINAP-AU-2024-160544

PATIENT

DRUGS (1)
  1. VOXZOGO [Suspect]
     Active Substance: VOSORITIDE
     Indication: Osteochondrodysplasia
     Dosage: UNK, QD
     Route: 058
     Dates: start: 20230901

REACTIONS (3)
  - Obstructive sleep apnoea syndrome [Recovered/Resolved]
  - Upper airway obstruction [Recovered/Resolved]
  - Pharyngeal disorder [Recovered/Resolved]
